FAERS Safety Report 6388912-3 (Version None)
Quarter: 2009Q4

REPORT INFORMATION
  Report Type: 
  Country: None (occurrence: None)
  Receive Date: 20091001
  Receipt Date: 20090922
  Transmission Date: 20100525
  Serious: Yes (Other)
  Sender: FDA-Public Use
  Company Number: ADR29962009

PATIENT
  Age: 50 Year
  Sex: Male

DRUGS (3)
  1. RAMIPRIL [Suspect]
     Indication: BLOOD PRESSURE
     Dosage: ORAL
     Route: 048
     Dates: start: 20070201
  2. ASPIRIN [Concomitant]
  3. ATORVSTATIN (10MG) [Concomitant]

REACTIONS (4)
  - AGGRESSION [None]
  - ANGER [None]
  - DEPRESSED MOOD [None]
  - FEELING ABNORMAL [None]
